FAERS Safety Report 8707325 (Version 2)
Quarter: 2012Q4

REPORT INFORMATION
  Report Type: Report from Study
  Country: US (occurrence: US)
  Receive Date: 20120803
  Receipt Date: 20121025
  Transmission Date: 20130627
  Serious: Yes (Hospitalization, Other)
  Sender: FDA-Public Use
  Company Number: US-ABBOTT-12P-163-0960768-00

PATIENT
  Sex: Female
  Weight: 63.56 kg

DRUGS (3)
  1. HUMIRA 40 MG/0.8 ML PEN [Suspect]
     Indication: CROHN^S DISEASE
     Dates: start: 2002, end: 201204
  2. WELCHOL [Concomitant]
     Indication: CROHN^S DISEASE
  3. EFFEXOR [Concomitant]
     Indication: DEPRESSION

REACTIONS (10)
  - Ulcer haemorrhage [Recovering/Resolving]
  - Abdominal pain upper [Recovering/Resolving]
  - Haematochezia [Recovering/Resolving]
  - Blood potassium decreased [Unknown]
  - Asthenia [Not Recovered/Not Resolved]
  - Myocardial infarction [Recovered/Resolved]
  - Crohn^s disease [Recovered/Resolved]
  - Vomiting [Recovered/Resolved]
  - Chest pain [Recovered/Resolved]
  - Coronary artery occlusion [Unknown]
